FAERS Safety Report 15491317 (Version 1)
Quarter: 2018Q4

REPORT INFORMATION
  Report Type: Spontaneous
  Country: FR (occurrence: FR)
  Receive Date: 20181012
  Receipt Date: 20181012
  Transmission Date: 20190205
  Serious: Yes (Other)
  Sender: FDA-Public Use
  Company Number: FR-JNJFOC-20181004107

PATIENT
  Age: 29 Year
  Sex: Female
  Weight: 62 kg

DRUGS (2)
  1. IMODIUM [Suspect]
     Active Substance: LOPERAMIDE HYDROCHLORIDE
     Route: 048
  2. IMODIUM [Suspect]
     Active Substance: LOPERAMIDE HYDROCHLORIDE
     Indication: DIARRHOEA
     Route: 048
     Dates: start: 20180910, end: 20180910

REACTIONS (3)
  - Biliary colic [Recovered/Resolved]
  - Abdominal pain [Recovered/Resolved]
  - Sphincter of Oddi dysfunction [Recovered/Resolved]

NARRATIVE: CASE EVENT DATE: 20180911
